FAERS Safety Report 9529414 (Version 1)
Quarter: 2013Q1

REPORT INFORMATION
  Report Type: Spontaneous
  Country: US (occurrence: None)
  Receive Date: 20130329
  Receipt Date: 20130329
  Transmission Date: 20140127
  Serious: No
  Sender: FDA-Public Use
  Company Number: 1000042631

PATIENT
  Age: 32 Year
  Sex: Female

DRUGS (1)
  1. LINZESS (LINACLOTIDE) [Suspect]

REACTIONS (1)
  - Blood glucose increased [None]
